FAERS Safety Report 5573872-5 (Version None)
Quarter: 2007Q4

REPORT INFORMATION
  Report Type: 
  Country: None (occurrence: None)
  Receive Date: 20071226
  Receipt Date: 20071214
  Transmission Date: 20080405
  Serious: Yes (Other)
  Sender: FDA-Public Use
  Company Number: CA-PFIZER INC-2007106595

PATIENT
  Age: 43 Year
  Sex: Female

DRUGS (5)
  1. CHANTIX [Suspect]
     Route: 048
  2. PREVACID [Concomitant]
     Route: 048
  3. LIPITOR [Concomitant]
     Route: 048
  4. SPIRIVA [Concomitant]
     Route: 055
  5. DILTIAZEM [Concomitant]
     Route: 048

REACTIONS (1)
  - FAECES DISCOLOURED [None]
